FAERS Safety Report 13054757 (Version 1)
Quarter: 2016Q4

REPORT INFORMATION
  Report Type: Spontaneous
  Country: IT (occurrence: IT)
  Receive Date: 20161222
  Receipt Date: 20161222
  Transmission Date: 20170207
  Serious: Yes (Life-Threatening)
  Sender: FDA-Public Use
  Company Number: IT-SEPTODONT-201603779

PATIENT
  Sex: Female

DRUGS (2)
  1. MEPIVACAINE HYDROCHLORIDE. [Suspect]
     Active Substance: MEPIVACAINE HYDROCHLORIDE
     Indication: LOCAL ANAESTHESIA
     Dosage: UNKNOWN DOSE
     Route: 004
  2. MEPIVACAINE HYDROCHLORIDE/EPINEPHRINE BITARTRAT E [Suspect]
     Active Substance: EPINEPHRINE\MEPIVACAINE HYDROCHLORIDE
     Indication: LOCAL ANAESTHESIA
     Dosage: UNKNOWN DOSE
     Route: 004

REACTIONS (2)
  - Dyspnoea [Recovering/Resolving]
  - Dysphonia [Recovering/Resolving]

NARRATIVE: CASE EVENT DATE: 20161129
